FAERS Safety Report 4513472-9 (Version None)
Quarter: 2004Q4

REPORT INFORMATION
  Report Type: 
  Country: None (occurrence: None)
  Receive Date: 20041130
  Receipt Date: 20041119
  Transmission Date: 20050328
  Serious: Yes (Hospitalization)
  Sender: FDA-Public Use
  Company Number: 200414363FR

PATIENT
  Age: 31 Year
  Sex: Male

DRUGS (9)
  1. RIFADIN [Suspect]
     Indication: INFECTION
     Dates: start: 20040813, end: 20040827
  2. TRIATEC FAIBLE 1.25 MG [Suspect]
     Route: 048
     Dates: start: 20040819, end: 20040826
  3. ORBENIN CAP [Suspect]
     Dates: start: 20040813, end: 20040827
  4. MOPRAL [Suspect]
     Route: 048
     Dates: start: 20040813, end: 20040825
  5. HEPARIN [Concomitant]
     Route: 042
  6. NEORECORMON [Concomitant]
     Dates: start: 20040813, end: 20040821
  7. TEGELINE [Concomitant]
  8. PRIMPERAN [Concomitant]
  9. KAYEXALATE [Concomitant]

REACTIONS (2)
  - APLASIA PURE RED CELL [None]
  - THROMBOCYTOPENIA [None]
